FAERS Safety Report 5028068-2 (Version None)
Quarter: 2006Q2

REPORT INFORMATION
  Report Type: 
  Country: None (occurrence: None)
  Receive Date: 20060613
  Receipt Date: 20060606
  Transmission Date: 20061013
  Serious: Yes (Other)
  Sender: FDA-Public Use
  Company Number: 2006-06-0195

PATIENT
  Sex: Female

DRUGS (2)
  1. NASONEX [Suspect]
     Indication: HYPERSENSITIVITY
     Dosage: 2 SQUIRTS NASAL SPRAY
     Route: 045
     Dates: start: 20060601, end: 20060601
  2. TOPROL-XL [Concomitant]

REACTIONS (1)
  - HEART RATE INCREASED [None]
